FAERS Safety Report 7387454-6 (Version None)
Quarter: 2011Q1

REPORT INFORMATION
  Report Type: 
  Country: None (occurrence: None)
  Receive Date: 20110331
  Receipt Date: 20110329
  Transmission Date: 20110831
  Serious: Yes (Death, Other)
  Sender: FDA-Public Use
  Company Number: US-ELI_LILLY_AND_COMPANY-US201103008160

PATIENT
  Age: 63 Year
  Sex: Female

DRUGS (2)
  1. HUMULIN 70/30 [Suspect]
     Indication: DIABETES MELLITUS
     Dosage: 80 U, UNK
     Dates: start: 19950101
  2. HUMULIN 70/30 [Suspect]
     Dosage: 60 U, EACH EVENING
     Dates: start: 19950101

REACTIONS (5)
  - DYSPNOEA [None]
  - BRONCHITIS [None]
  - PULMONARY THROMBOSIS [None]
  - COUGH [None]
  - PNEUMONIA [None]
